FAERS Safety Report 17550576 (Version 2)
Quarter: 2020Q1

REPORT INFORMATION
  Report Type: Spontaneous
  Country: US (occurrence: US)
  Receive Date: 20200317
  Receipt Date: 20200323
  Transmission Date: 20200409
  Serious: No
  Sender: FDA-Public Use
  Company Number: US-PFIZER INC-2020114633

PATIENT
  Age: 54 Year
  Sex: Female
  Weight: 93.44 kg

DRUGS (11)
  1. OMEPRAZOLE. [Concomitant]
     Active Substance: OMEPRAZOLE
     Indication: GASTROOESOPHAGEAL REFLUX DISEASE
     Dosage: 20 MG, 1X/DAY
     Dates: start: 2000
  2. HYDROCODONE [Concomitant]
     Active Substance: HYDROCODONE
     Indication: PAIN
     Dosage: UNK, DAILY [10/325. 6 A DAY BY MOUTH]
     Route: 048
     Dates: start: 2011
  3. LYRICA [Suspect]
     Active Substance: PREGABALIN
     Dosage: 150 MG, 3X/DAY (ONE CAPSULE THREE TIMES A DAY BY MOUTH)
     Route: 048
  4. EFFEXOR [Concomitant]
     Active Substance: VENLAFAXINE HYDROCHLORIDE
     Indication: DEPRESSION
     Dosage: 150 MG, 1X/DAY
     Dates: start: 1993
  5. IRON [Concomitant]
     Active Substance: IRON
     Indication: ANAEMIA
     Dosage: 65 MG, 2X/DAY (65 MG. TWICE A DAY BY MOUTH)
     Route: 048
     Dates: start: 201903
  6. VITAMIN D3 [Concomitant]
     Active Substance: CHOLECALCIFEROL
     Dosage: 10000 IU, DAILY[125 MCG PER PEARL BY MOUTH. 2 PEARLS A DAY]
     Route: 048
     Dates: start: 2005
  7. ESTROVEN [Concomitant]
     Active Substance: DIETARY SUPPLEMENT
     Indication: HOT FLUSH
     Dosage: UNK
     Dates: start: 202002
  8. LYRICA [Suspect]
     Active Substance: PREGABALIN
     Indication: FIBROMYALGIA
     Dosage: 50 MG, DAILY
  9. GABAPENTIN. [Concomitant]
     Active Substance: GABAPENTIN
     Indication: FIBROMYALGIA
     Dosage: 1200 MG, 3X/DAY (600 MG TABLETS 2 TABLETS THREE TIMES DAILY BY MOUTH)
     Route: 048
     Dates: start: 2015
  10. ACETYLSALICYLIC ACID/BUTALBITAL/CAFFEINE/PHENACETIN [Concomitant]
     Active Substance: ASPIRIN\BUTALBITAL\CAFFEINE\PHENACETIN
     Indication: HEADACHE
     Dosage: 1 DF, AS NEEDED (50/325-40. TAKE ONE AS NEEDED AND AFTER 1 HOUR HEADACHE HAS NOT SUBSIDED, TAKE ANO)
     Dates: start: 2011
  11. ACETYLSALICYLIC ACID/BUTALBITAL/CAFFEINE/PHENACETIN [Concomitant]
     Active Substance: ASPIRIN\BUTALBITAL\CAFFEINE\PHENACETIN
     Indication: STRESS

REACTIONS (3)
  - Nodule [Unknown]
  - Headache [Recovered/Resolved]
  - Intentional product use issue [Unknown]

NARRATIVE: CASE EVENT DATE: 2012
